FAERS Safety Report 7922611-9 (Version None)
Quarter: 2011Q4

REPORT INFORMATION
  Report Type: 
  Country: None (occurrence: None)
  Receive Date: 20111117
  Receipt Date: 20110107
  Transmission Date: 20120403
  Serious: No
  Sender: FDA-Public Use
  Company Number: US-ALLERGAN-1016222US

PATIENT
  Age: 81 Year
  Sex: Female

DRUGS (3)
  1. COMBIGAN [Suspect]
     Dosage: 1 GTT, BID
     Route: 047
     Dates: start: 20101208
  2. TRAVATAN [Concomitant]
     Indication: GLAUCOMA
     Dosage: 1 GTT, QPM
     Route: 047
  3. COMBIGAN [Suspect]
     Indication: GLAUCOMA
     Dosage: 1 GTT, BID
     Route: 047
     Dates: start: 20101213

REACTIONS (5)
  - HAEMORRHAGE [None]
  - LIMB INJURY [None]
  - LACERATION [None]
  - OEDEMA PERIPHERAL [None]
  - CONTUSION [None]
